FAERS Safety Report 7480159-2 (Version None)
Quarter: 2011Q2

REPORT INFORMATION
  Report Type: 
  Country: None (occurrence: None)
  Receive Date: 20110516
  Receipt Date: 20110505
  Transmission Date: 20111010
  Serious: No
  Sender: FDA-Public Use
  Company Number: US-BIOGENIDEC-2011BI017313

PATIENT
  Age: 25 Year
  Sex: Female

DRUGS (5)
  1. TYSABRI [Suspect]
     Indication: MULTIPLE SCLEROSIS
     Route: 042
     Dates: start: 20110329
  2. AVONEX [Concomitant]
     Indication: MULTIPLE SCLEROSIS
     Route: 030
     Dates: start: 20100625
  3. TYSABRI [Suspect]
     Route: 042
     Dates: start: 20080702, end: 20091222
  4. BENADRYL [Concomitant]
     Indication: PREMEDICATION
  5. TYSABRI [Suspect]
     Route: 042
     Dates: start: 20100916, end: 20110214

REACTIONS (1)
  - HYPERSENSITIVITY [None]
